FAERS Safety Report 5546787-6 (Version None)
Quarter: 2007Q4

REPORT INFORMATION
  Report Type: 
  Country: None (occurrence: None)
  Receive Date: 20071126
  Receipt Date: 20070125
  Transmission Date: 20080405
  Serious: Yes (Hospitalization, Other)
  Sender: FDA-Public Use
  Company Number: 33892

PATIENT
  Age: 66 Year
  Sex: Female

DRUGS (8)
  1. ADRIAMYCIN PFS [Suspect]
     Indication: BREAST CANCER
     Dosage: 115MG
     Dates: start: 20061130
  2. ADRIAMYCIN PFS [Suspect]
  3. ZETIA [Concomitant]
  4. LEXAPRO [Concomitant]
  5. PROTONIX [Concomitant]
  6. AMBIEN [Concomitant]
  7. TRAMADOL HCL [Concomitant]
  8. IBUPROFEN [Concomitant]

REACTIONS (1)
  - CELLULITIS [None]
